FAERS Safety Report 7895019-2 (Version None)
Quarter: 2011Q4

REPORT INFORMATION
  Report Type: 
  Country: None (occurrence: None)
  Receive Date: 20111106
  Receipt Date: 20110822
  Transmission Date: 20120403
  Serious: No
  Sender: FDA-Public Use
  Company Number: US-AMGEN-USASP2011042962

PATIENT
  Age: 61 Year
  Sex: Male
  Weight: 99.773 kg

DRUGS (21)
  1. ENBREL [Suspect]
     Indication: PSORIASIS
  2. GABAPENTIN [Concomitant]
     Indication: NEURALGIA
     Dosage: UNK
  3. CLORAZEPATE DIPOTASSIUM [Concomitant]
     Indication: ANXIETY
     Dosage: UNK
  4. HUMIRA [Concomitant]
     Indication: PSORIATIC ARTHROPATHY
     Dosage: 4 SHOTS TOTAL, TID
     Dates: start: 20110401, end: 20110601
  5. PAROXETINE HCL [Concomitant]
     Indication: DEPRESSION
     Dosage: UNK
  6. FISH OIL [Concomitant]
     Dosage: UNK
  7. ENBREL [Suspect]
     Indication: PSORIATIC ARTHROPATHY
     Dosage: UNK
  8. LANSOPRAZOLE [Concomitant]
     Dosage: UNK
  9. LOSARTAN POTASSIUM [Concomitant]
     Indication: HYPERTENSION
     Dosage: UNK
  10. CYANOCOBALAMIN [Concomitant]
     Indication: PERNICIOUS ANAEMIA
     Dosage: UNK
  11. EZETIMIBE [Concomitant]
     Indication: BLOOD CHOLESTEROL INCREASED
     Dosage: UNK
  12. WARFARIN SODIUM [Concomitant]
     Indication: PULMONARY EMBOLISM
     Dosage: UNK
  13. TYLOX [Concomitant]
     Indication: PAIN
     Dosage: UNK
  14. PREDNISONE [Concomitant]
     Dosage: UNK
     Dates: start: 20110401
  15. LORAZEPAM [Concomitant]
     Indication: PANIC ATTACK
     Dosage: UNK
  16. CETIRIZINE HCL [Concomitant]
     Indication: HYPERSENSITIVITY
     Dosage: UNK
  17. HYDROCHLOROTHIAZIDE [Concomitant]
     Indication: FLUID RETENTION
     Dosage: UNK
  18. OXYCODONE HCL [Concomitant]
     Indication: PAIN
     Dosage: UNK
  19. HUMIRA [Concomitant]
     Indication: PSORIASIS
  20. POTASSIUM [Concomitant]
     Dosage: UNK
  21. TESTOSTERONE [Concomitant]
     Indication: BLOOD TESTOSTERONE DECREASED
     Dosage: UNK

REACTIONS (2)
  - BREATH SOUNDS ABNORMAL [None]
  - DYSPNOEA [None]
